FAERS Safety Report 24353136 (Version 1)
Quarter: 2024Q3

REPORT INFORMATION
  Report Type: Spontaneous
  Country: US (occurrence: US)
  Receive Date: 20240923
  Receipt Date: 20240923
  Transmission Date: 20241017
  Serious: Yes (Hospitalization, Other)
  Sender: PFIZER
  Company Number: US-PFIZER INC-202400259843

PATIENT
  Age: 63 Year
  Sex: Female
  Weight: 81.19 kg

DRUGS (3)
  1. XELJANZ XR [Suspect]
     Active Substance: TOFACITINIB CITRATE
     Indication: Rheumatoid arthritis
     Dosage: 11 MG, ONCE A DAY
     Dates: start: 201511, end: 20240802
  2. LEVOTHYROXINE [Concomitant]
     Active Substance: LEVOTHYROXINE\LEVOTHYROXINE SODIUM
     Indication: Thyroid disorder
     Dosage: TABLET BY MOUTH ONCE DAILY IN THE MORNING
     Route: 048
  3. ROSUVASTATIN [Concomitant]
     Active Substance: ROSUVASTATIN\ROSUVASTATIN CALCIUM
     Indication: Lipid metabolism disorder
     Dosage: ONE TABLET BY MOUTH ONCE DAILY
     Route: 048

REACTIONS (5)
  - Diverticulitis [Not Recovered/Not Resolved]
  - Skin disorder [Not Recovered/Not Resolved]
  - Temporomandibular pain and dysfunction syndrome [Unknown]
  - Arthritis [Unknown]
  - Inflammation [Unknown]

NARRATIVE: CASE EVENT DATE: 20150101
